FAERS Safety Report 9805214 (Version 1)
Quarter: 2014Q1

REPORT INFORMATION
  Report Type: Report from Study
  Country: US (occurrence: US)
  Receive Date: 20140109
  Receipt Date: 20140109
  Transmission Date: 20141002
  Serious: Yes (Death)
  Sender: FDA-Public Use
  Company Number: US-ROCHE-1329434

PATIENT
  Sex: 0

DRUGS (4)
  1. RITUXIMAB [Suspect]
     Indication: PROPHYLAXIS AGAINST GRAFT VERSUS HOST DISEASE
     Dosage: ON DAY 13
     Route: 042
  2. RITUXIMAB [Suspect]
     Dosage: ON DAY: -6, +1, AND +8.
     Route: 042
  3. BENDAMUSTINE [Suspect]
     Indication: PROPHYLAXIS AGAINST GRAFT VERSUS HOST DISEASE
     Dosage: DAILY ON DAYS -5 TO - 3 PRIOR TO TRANSPLANTATION.
     Route: 042
  4. FLUDARABINE [Suspect]
     Indication: PROPHYLAXIS AGAINST GRAFT VERSUS HOST DISEASE
     Dosage: DAILY ON DAYS -5 TO - 3 PRIOR TO TRANSPLANTATION.
     Route: 042

REACTIONS (3)
  - Infection [Fatal]
  - Graft versus host disease [Fatal]
  - Disease progression [Fatal]
